FAERS Safety Report 8829772 (Version 1)
Quarter: 2012Q4

REPORT INFORMATION
  Report Type: 
  Country: US (occurrence: US)
  Receive Date: 20121008
  Receipt Date: 20121008
  Transmission Date: 20130627
  Serious: Yes (Death, Hospitalization)
  Sender: FDA-Public Use
  Company Number: US-ASTRAZENECA-2012SE76243

PATIENT
  Age: 44 Year
  Sex: Female

DRUGS (3)
  1. FASLODEX [Suspect]
     Indication: BREAST CANCER METASTATIC
     Route: 030
  2. AFINITOR [Suspect]
     Route: 065
  3. DIFFERENT TYPE OF CHEMOTHERAPY [Concomitant]

REACTIONS (5)
  - Death [Fatal]
  - Jaundice [Unknown]
  - Liver function test abnormal [Unknown]
  - Blood bilirubin increased [Unknown]
  - Liver disorder [Unknown]
